FAERS Safety Report 25202540 (Version 1)
Quarter: 2025Q2

REPORT INFORMATION
  Report Type: Spontaneous
  Country: US (occurrence: US)
  Receive Date: 20250416
  Receipt Date: 20250416
  Transmission Date: 20250717
  Serious: Yes (Other)
  Sender: MSN LABORATORIES PRIVATE LIMITED
  Company Number: US-MSNLABS-2025MSNLIT00900

PATIENT

DRUGS (1)
  1. DOFETILIDE [Suspect]
     Active Substance: DOFETILIDE
     Indication: Supraventricular tachycardia
     Route: 065

REACTIONS (3)
  - Electrocardiogram QT prolonged [Unknown]
  - Torsade de pointes [Unknown]
  - Bradycardia [Unknown]
